FAERS Safety Report 7646721-9 (Version None)
Quarter: 2011Q3

REPORT INFORMATION
  Report Type: 
  Country: None (occurrence: None)
  Receive Date: 20110801
  Receipt Date: 20110721
  Transmission Date: 20111222
  Serious: Yes (Other)
  Sender: FDA-Public Use
  Company Number: FR-CELGENEUS-056-21880-11072467

PATIENT
  Sex: Female

DRUGS (46)
  1. LYRICA [Concomitant]
     Dosage: MILLIGRAM
     Route: 048
     Dates: start: 20110505, end: 20110611
  2. ARIXTRA [Concomitant]
     Dosage: 7.5 MILLIGRAM
     Route: 058
     Dates: start: 20110608, end: 20110613
  3. NEODEX [Concomitant]
     Dosage: 1 TABLET
     Route: 048
     Dates: start: 20110609, end: 20110612
  4. MORPHINE SULFATE [Concomitant]
     Indication: PAIN
     Dosage: MILLIGRAM
     Route: 048
     Dates: start: 20110610, end: 20110614
  5. KETAMINE HCL [Concomitant]
     Dosage: 70 MILLIGRAM
     Route: 041
     Dates: start: 20110621, end: 20110625
  6. POTASSIUM [Concomitant]
     Dosage: 2 MILLIGRAM
     Route: 041
     Dates: start: 20110622, end: 20110624
  7. MIDAZOLAM HCL [Concomitant]
     Dosage: MILLIGRAM
     Route: 041
     Dates: start: 20110720, end: 20110720
  8. TRANSIPEG [Concomitant]
     Route: 048
     Dates: start: 20110718, end: 20110718
  9. SODIUM BICARBONATE [Concomitant]
     Dosage: MILLIGRAM
     Route: 061
     Dates: start: 20110528, end: 20110528
  10. MORPHINE [Concomitant]
     Dosage: 1MG/ML
     Route: 041
     Dates: start: 20110621, end: 20110705
  11. GELOFUSINE [Concomitant]
     Route: 041
     Dates: start: 20110625, end: 20110625
  12. PIPERACILLIN AND TAZOBACTAM [Concomitant]
     Route: 041
     Dates: start: 20110629, end: 20110712
  13. CLONAZEPAM [Concomitant]
     Dosage: MILLIGRAM
     Route: 048
     Dates: start: 20110717, end: 20110720
  14. LOVENOX [Concomitant]
     Indication: ANGINA PECTORIS
     Route: 058
     Dates: start: 20110622, end: 20110710
  15. MEDNUTRIFLEX [Concomitant]
     Route: 041
     Dates: start: 20110718, end: 20110718
  16. VALPROATE SODIUM [Concomitant]
     Indication: EPILEPSY
     Dosage: 250 MILLIGRAM
     Route: 048
     Dates: start: 20110426, end: 20110622
  17. GLUCIDION [Concomitant]
     Dosage: MILLIGRAM
     Route: 065
     Dates: start: 20110526, end: 20110617
  18. NEODEX [Concomitant]
     Dosage: 1 TABLET
     Route: 048
     Dates: start: 20110701, end: 20110701
  19. KETOPROFEN [Concomitant]
     Route: 041
     Dates: start: 20110626, end: 20110627
  20. FOLIC ACID [Concomitant]
     Dosage: 5 MILLIGRAM
     Route: 048
     Dates: start: 20110609, end: 20110717
  21. FRAGMIN [Concomitant]
     Dosage: 5000 IU (INTERNATIONAL UNIT)
     Route: 058
     Dates: start: 20110619, end: 20110622
  22. ROCEPHIN [Concomitant]
     Indication: EPSTEIN-BARR VIRUS INFECTION
     Route: 041
  23. DEXAMETHASONE [Concomitant]
     Dosage: 40 MILLIGRAM
     Route: 041
     Dates: start: 20110618, end: 20110624
  24. TRAMADOL HCL [Concomitant]
     Indication: PAIN
     Dosage: MILLIGRAM
     Route: 041
     Dates: start: 20110528, end: 20110614
  25. MORPHINE [Concomitant]
     Route: 041
     Dates: start: 20110614, end: 20110620
  26. KEPPRA [Concomitant]
     Route: 048
     Dates: start: 20110621, end: 20110623
  27. POTASSIUM CHLORIDE [Concomitant]
     Route: 048
     Dates: start: 20110622, end: 20110624
  28. CIPROFLOXACIN [Concomitant]
     Route: 041
     Dates: start: 20110629, end: 20110712
  29. ZARZIO [Concomitant]
     Dosage: 30 MILLIGRAM
     Route: 058
     Dates: start: 20110628, end: 20110705
  30. ACUPAN [Concomitant]
     Dosage: MILLIGRAM
     Route: 041
     Dates: start: 20110720, end: 20110720
  31. REVLIMID [Suspect]
     Dosage: 25 MILLIGRAM
     Route: 048
     Dates: start: 20110610, end: 20110629
  32. ARIXTRA [Concomitant]
     Dosage: 7.5 MILLIGRAM
     Route: 058
     Dates: end: 20110629
  33. ACETAMINOPHEN [Concomitant]
     Route: 041
     Dates: start: 20110615, end: 20110621
  34. KEPPRA [Concomitant]
     Route: 041
     Dates: start: 20110623
  35. GENTAMICIN [Concomitant]
     Dosage: MILLIGRAM
     Route: 041
     Dates: start: 20110626, end: 20110626
  36. MORPHINE [Concomitant]
     Dosage: 1MG/ML
     Route: 041
     Dates: start: 20110707
  37. PIPERACILLIN AND TAZOBACTAM [Concomitant]
     Dosage: MILLIGRAM
     Route: 041
     Dates: start: 20110623, end: 20110626
  38. PHOCYTAN [Concomitant]
     Dosage: MILLIGRAM
     Route: 041
     Dates: start: 20110629, end: 20110707
  39. NOVASOURCE [Concomitant]
     Route: 065
     Dates: start: 20110713, end: 20110717
  40. ACETAMINOPHEN [Concomitant]
     Route: 041
     Dates: start: 20110614, end: 20110615
  41. METHYLPREDNISOLONE [Concomitant]
     Dosage: 120 MILLIGRAM
     Route: 041
     Dates: start: 20110615, end: 20110615
  42. CIPROFLOXACIN [Concomitant]
     Indication: EPSTEIN-BARR VIRUS INFECTION
     Route: 041
     Dates: start: 20110623, end: 20110626
  43. NEXIUM [Concomitant]
     Dosage: MILLIGRAM
     Route: 041
     Dates: start: 20110626, end: 20110626
  44. NORMACOL [Concomitant]
     Dosage: MILLIGRAM
     Route: 065
     Dates: start: 20110627, end: 20110627
  45. FORLAX [Concomitant]
     Dosage: 2 DOSAGE FORMS
     Route: 065
     Dates: start: 20110627, end: 20110628
  46. PROCTOLOG RECTAL [Concomitant]
     Dosage: MILLIGRAM
     Route: 054
     Dates: start: 20110628

REACTIONS (1)
  - T-CELL LYMPHOMA [None]
